FAERS Safety Report 25722973 (Version 1)
Quarter: 2025Q3

REPORT INFORMATION
  Report Type: Spontaneous
  Country: US (occurrence: US)
  Receive Date: 20250825
  Receipt Date: 20250825
  Transmission Date: 20251021
  Serious: Yes (Hospitalization, Other)
  Sender: AMGEN
  Company Number: US-AMGEN-USASP2025162438

PATIENT
  Age: 7 Decade
  Sex: Female

DRUGS (1)
  1. INFLIXIMAB [Suspect]
     Active Substance: INFLIXIMAB
     Indication: Crohn^s disease
     Route: 065

REACTIONS (7)
  - Gallbladder enlargement [Recovered/Resolved]
  - Cholelithiasis [Recovered/Resolved]
  - Medical device site erosion [Recovered/Resolved]
  - Gastrointestinal anastomotic leak [Recovered/Resolved]
  - Post procedural pulmonary embolism [Unknown]
  - Abdominal abscess [Recovered/Resolved]
  - Candida infection [Recovered/Resolved]
